FAERS Safety Report 13948853 (Version 1)
Quarter: 2017Q3

REPORT INFORMATION
  Report Type: Spontaneous
  Country: CA (occurrence: CA)
  Receive Date: 20170908
  Receipt Date: 20170908
  Transmission Date: 20171128
  Serious: Yes (Life-Threatening, Other)
  Sender: FDA-Public Use
  Company Number: PHHY2017CA131969

PATIENT
  Sex: Male

DRUGS (1)
  1. SANDOZ METFORMIN FC [Suspect]
     Active Substance: METFORMIN HYDROCHLORIDE
     Indication: DIABETES MELLITUS
     Dosage: HALF A TABLET TWICE DAY
     Route: 065

REACTIONS (7)
  - Dizziness [Unknown]
  - Gastrointestinal pain [Unknown]
  - Hyperhidrosis [Unknown]
  - Diarrhoea [Unknown]
  - Feeling abnormal [Unknown]
  - Loss of consciousness [Unknown]
  - Muscle spasms [Unknown]
